FAERS Safety Report 9156618 (Version 1)
Quarter: 2013Q1

REPORT INFORMATION
  Report Type: Spontaneous
  Country: NO (occurrence: None)
  Receive Date: 20130208
  Receipt Date: 20130208
  Transmission Date: 20140127
  Serious: No
  Sender: FDA-Public Use
  Company Number: 2013-01842

PATIENT
  Sex: Male

DRUGS (1)
  1. FLUOXETINE HYDROCHLORIDE (FLUOXETINE HYDROCHLORIDE) [Suspect]
     Indication: PRODUCT USED FOR UNKNOWN INDICATION

REACTIONS (9)
  - Blindness [None]
  - Cleft lip and palate [None]
  - Congenital central nervous system anomaly [None]
  - Maternal drugs affecting foetus [None]
  - Congenital eye disorder [None]
  - Fallot^s tetralogy [None]
  - Microcephaly [None]
  - Motor developmental delay [None]
  - Small for dates baby [None]
